FAERS Safety Report 9559705 (Version 1)
Quarter: 2013Q3

REPORT INFORMATION
  Report Type: Report from Study
  Country: NZ (occurrence: NZ)
  Receive Date: 20130927
  Receipt Date: 20130927
  Transmission Date: 20140515
  Serious: Yes (Other)
  Sender: FDA-Public Use
  Company Number: NZ-SANOFI-AVENTIS-2013SA093915

PATIENT
  Age: 58 Year
  Sex: Female

DRUGS (11)
  1. ARAVA [Suspect]
     Indication: RHEUMATOID ARTHRITIS
     Route: 048
     Dates: start: 20120709
  2. PLAQUENIL [Suspect]
     Indication: RHEUMATOID ARTHRITIS
     Route: 065
     Dates: start: 20090801
  3. FOSAMAX [Concomitant]
  4. AVANZA [Concomitant]
  5. AMITRIP [Concomitant]
  6. LAMOTRIGINE [Concomitant]
  7. DEXAMFETAMINE [Concomitant]
  8. OLANZAPINE [Concomitant]
  9. MORPHINE [Concomitant]
  10. PARACETAMOL [Concomitant]
  11. CODEINE [Concomitant]

REACTIONS (5)
  - C-reactive protein increased [Not Recovered/Not Resolved]
  - Aspartate aminotransferase increased [Not Recovered/Not Resolved]
  - Swelling [Not Recovered/Not Resolved]
  - Pain [Not Recovered/Not Resolved]
  - Drug ineffective [Unknown]
